FAERS Safety Report 21120182 (Version 6)
Quarter: 2022Q4

REPORT INFORMATION
  Report Type: Report from Study
  Country: US (occurrence: US)
  Receive Date: 20220722
  Receipt Date: 20221219
  Transmission Date: 20230113
  Serious: Yes (Hospitalization, Other)
  Sender: FDA-Public Use
  Company Number: US-NOVARTISTESTPH-NVSC2022US165543

PATIENT
  Sex: Female

DRUGS (5)
  1. ENTRESTO [Suspect]
     Active Substance: SACUBITRIL\VALSARTAN
     Indication: Product used for unknown indication
     Dosage: 1 DOSAGE FORM, BID (24/26MG)
     Route: 048
     Dates: start: 202206
  2. GABAPENTIN [Suspect]
     Active Substance: GABAPENTIN
     Indication: Product used for unknown indication
     Dosage: UNK
     Route: 065
  3. HYDROCODONE [Suspect]
     Active Substance: HYDROCODONE
     Indication: Product used for unknown indication
     Dosage: UNK
     Route: 065
  4. UNSPECIFIED INGREDIENT [Concomitant]
     Active Substance: UNSPECIFIED INGREDIENT
     Indication: Product used for unknown indication
     Dosage: UNK
     Route: 065
  5. VITAMIN C [Concomitant]
     Active Substance: ASCORBIC ACID
     Indication: Product used for unknown indication
     Dosage: UNK
     Route: 065

REACTIONS (30)
  - Back pain [Unknown]
  - Chest pain [Unknown]
  - Cardiac dysfunction [Unknown]
  - Systemic lupus erythematosus [Unknown]
  - Autoimmune disorder [Unknown]
  - Cervix carcinoma [Unknown]
  - Ejection fraction decreased [Unknown]
  - Ascites [Unknown]
  - Peripheral artery occlusion [Unknown]
  - Swelling [Unknown]
  - Pollakiuria [Unknown]
  - Bronchitis [Unknown]
  - Influenza [Unknown]
  - Weight increased [Unknown]
  - Suffocation feeling [Unknown]
  - Liver disorder [Unknown]
  - Gastric disorder [Unknown]
  - Coagulopathy [Unknown]
  - Oedema peripheral [Unknown]
  - Pancreatic disorder [Unknown]
  - Joint swelling [Unknown]
  - Peripheral swelling [Unknown]
  - Fluid retention [Unknown]
  - Gait disturbance [Unknown]
  - Pain in extremity [Unknown]
  - Dysstasia [Unknown]
  - Tearfulness [Unknown]
  - Swelling face [Unknown]
  - Cough [Unknown]
  - Renal disorder [Unknown]
